FAERS Safety Report 5226430-6 (Version None)
Quarter: 2007Q1

REPORT INFORMATION
  Report Type: 
  Country: None (occurrence: None)
  Receive Date: 20070201
  Receipt Date: 20070119
  Transmission Date: 20070707
  Serious: Yes (Hospitalization)
  Sender: FDA-Public Use
  Company Number: US-ELI_LILLY_AND_COMPANY-US200611005001

PATIENT
  Age: 69 Year
  Sex: Female

DRUGS (4)
  1. FORTEO [Suspect]
     Indication: OSTEOPOROSIS
     Dosage: UNK, UNK
  2. FORTEO [Suspect]
     Dosage: UNK, UNK
     Dates: start: 20061023
  3. ACTONEL                                 /USA/ [Concomitant]
  4. CALCIUM [Concomitant]

REACTIONS (6)
  - DYSPEPSIA [None]
  - FRACTURE [None]
  - GASTRITIS [None]
  - GASTROOESOPHAGEAL REFLUX DISEASE [None]
  - PANCREATITIS [None]
  - STRESS FRACTURE [None]
